FAERS Safety Report 12639453 (Version 2)
Quarter: 2016Q3

REPORT INFORMATION
  Report Type: Report from Study
  Country: TW (occurrence: TW)
  Receive Date: 20160810
  Receipt Date: 20160819
  Transmission Date: 20161109
  Serious: Yes (Death)
  Sender: FDA-Public Use
  Company Number: TW-ROCHE-1810896

PATIENT
  Age: 82 Year
  Sex: Male

DRUGS (3)
  1. MABTHERA [Suspect]
     Active Substance: RITUXIMAB
     Dosage: 3RD CYCLE
     Route: 041
     Dates: start: 20160308, end: 20160329
  2. MABTHERA [Suspect]
     Active Substance: RITUXIMAB
     Dosage: 2ND CYCLE
     Route: 041
     Dates: start: 20150815, end: 20150905
  3. MABTHERA [Suspect]
     Active Substance: RITUXIMAB
     Indication: MICROSCOPIC POLYANGIITIS
     Dosage: 1ST CYCLE
     Route: 041
     Dates: start: 20130920, end: 20141011

REACTIONS (4)
  - Vasculitis [Fatal]
  - Respiratory failure [Fatal]
  - Sepsis [Fatal]
  - Cardiac failure [Fatal]

NARRATIVE: CASE EVENT DATE: 201605
